FAERS Safety Report 13616520 (Version 1)
Quarter: 2017Q2

REPORT INFORMATION
  Report Type: Spontaneous
  Country: US (occurrence: US)
  Receive Date: 20170606
  Receipt Date: 20170606
  Transmission Date: 20170830
  Serious: No
  Sender: FDA-Public Use
  Company Number: US-SA-2016SA086270

PATIENT
  Sex: Female

DRUGS (3)
  1. LANTUS [Suspect]
     Active Substance: INSULIN GLARGINE
     Route: 065
  2. NOVOLOG [Suspect]
     Active Substance: INSULIN ASPART
     Route: 065
  3. TRULICITY [Suspect]
     Active Substance: DULAGLUTIDE
     Route: 065

REACTIONS (1)
  - Weight decreased [Unknown]
